FAERS Safety Report 5188911-3 (Version None)
Quarter: 2006Q4

REPORT INFORMATION
  Report Type: 
  Country: None (occurrence: None)
  Receive Date: 20061215
  Receipt Date: 20061204
  Transmission Date: 20070319
  Serious: Yes (Death, Other)
  Sender: FDA-Public Use
  Company Number: 2006152020

PATIENT
  Age: 51 Year
  Sex: Male

DRUGS (1)
  1. NEURONTIN [Suspect]
     Indication: PAIN
     Dates: start: 20011201

REACTIONS (11)
  - AGGRESSION [None]
  - AGITATION [None]
  - ANXIETY [None]
  - COMPLETED SUICIDE [None]
  - DEPRESSION [None]
  - FEELING ABNORMAL [None]
  - GUN SHOT WOUND [None]
  - HEAD INJURY [None]
  - IRRITABILITY [None]
  - SELF-INJURIOUS IDEATION [None]
  - SUICIDAL IDEATION [None]
